FAERS Safety Report 13651965 (Version 1)
Quarter: 2017Q2

REPORT INFORMATION
  Report Type: Spontaneous
  Country: US (occurrence: US)
  Receive Date: 20170614
  Receipt Date: 20170614
  Transmission Date: 20170830
  Serious: Yes (Hospitalization, Disabling)
  Sender: FDA-Public Use
  Company Number: None

PATIENT
  Age: 34 Year
  Sex: Male
  Weight: 117.9 kg

DRUGS (1)
  1. TALTZ [Suspect]
     Active Substance: IXEKIZUMAB
     Indication: PSORIASIS
     Dosage: ?          OTHER FREQUENCY:EVERY 4 WEEKS;?
     Route: 058
     Dates: start: 20161026, end: 20170517

REACTIONS (7)
  - Immunosuppression [None]
  - Abdominal infection [None]
  - Diverticulitis [None]
  - Leukocytosis [None]
  - Tachycardia [None]
  - Abscess [None]
  - Umbilical hernia [None]

NARRATIVE: CASE EVENT DATE: 20170310
